FAERS Safety Report 5065072-2 (Version None)
Quarter: 2006Q3

REPORT INFORMATION
  Report Type: 
  Country: None (occurrence: None)
  Receive Date: 20060728
  Receipt Date: 20060718
  Transmission Date: 20061208
  Serious: Yes (Other)
  Sender: FDA-Public Use
  Company Number: IL-MERCK-0607USA03980

PATIENT
  Age: 28 Year
  Sex: Male

DRUGS (1)
  1. DECADRON [Suspect]
     Indication: THROMBOCYTOPENIA
     Route: 048

REACTIONS (2)
  - APPENDICITIS [None]
  - DRUG INEFFECTIVE [None]
